FAERS Safety Report 5344567-8 (Version None)
Quarter: 2007Q2

REPORT INFORMATION
  Report Type: 
  Country: None (occurrence: None)
  Receive Date: 20070604
  Receipt Date: 20070529
  Transmission Date: 20071010
  Serious: Yes (Hospitalization, Other)
  Sender: FDA-Public Use
  Company Number: US-PFIZER INC-2007042985

PATIENT
  Sex: Female
  Weight: 71.363 kg

DRUGS (7)
  1. CHANTIX [Suspect]
     Indication: SMOKING CESSATION THERAPY
  2. ALBUTEROL [Concomitant]
  3. ADVAIR DISKUS 100/50 [Concomitant]
  4. SPIRIVA [Concomitant]
  5. LIPITOR [Concomitant]
  6. AMLODIPINE [Concomitant]
  7. VENTOLIN [Concomitant]

REACTIONS (6)
  - DRUG DOSE OMISSION [None]
  - DYSGEUSIA [None]
  - LUNG DISORDER [None]
  - NAUSEA [None]
  - PNEUMONIA [None]
  - PULMONARY CONGESTION [None]
